FAERS Safety Report 9032476 (Version 1)
Quarter: 2013Q1

REPORT INFORMATION
  Report Type: Spontaneous
  Country: FR (occurrence: FR)
  Receive Date: 20130125
  Receipt Date: 20130125
  Transmission Date: 20140127
  Serious: Yes (Other)
  Sender: FDA-Public Use
  Company Number: FR-ASTRAZENECA-2013SE04490

PATIENT
  Age: 23174 Day
  Sex: Male

DRUGS (8)
  1. CRESTOR [Suspect]
     Indication: HYPERCHOLESTEROLAEMIA
     Route: 048
     Dates: start: 200606
  2. METFORMIN [Suspect]
     Indication: TYPE 2 DIABETES MELLITUS
     Route: 048
  3. JANUMET [Suspect]
     Indication: TYPE 2 DIABETES MELLITUS
     Dosage: 50 MG / 1000 MG, ONE DF PER DAY
     Route: 048
     Dates: start: 20101209
  4. APIDRA [Suspect]
     Indication: TYPE 2 DIABETES MELLITUS
     Route: 058
  5. LANTUS [Suspect]
     Indication: TYPE 2 DIABETES MELLITUS
     Route: 058
  6. COAPROVEL [Suspect]
     Indication: HYPERTENSION
     Route: 048
  7. KARDEGIC [Suspect]
     Route: 048
  8. AMLODIPINE [Suspect]
     Indication: HYPERTENSION
     Route: 048

REACTIONS (3)
  - Tendon rupture [Recovered/Resolved]
  - Tendon disorder [Recovered/Resolved]
  - Fall [Unknown]
